FAERS Safety Report 23675981 (Version 2)
Quarter: 2024Q2

REPORT INFORMATION
  Report Type: Spontaneous
  Country: US (occurrence: None)
  Receive Date: 20240327
  Receipt Date: 20240404
  Transmission Date: 20240716
  Serious: Yes (Hospitalization)
  Sender: FDA-Public Use
  Company Number: US-ROCHE-3529289

PATIENT
  Age: 46 Year
  Sex: Male

DRUGS (1)
  1. HEMLIBRA [Suspect]
     Active Substance: EMICIZUMAB-KXWH
     Indication: Factor VIII deficiency
     Dosage: STRENGTH: 105 MG/0.7ML
     Route: 058
     Dates: start: 202401

REACTIONS (2)
  - Abdominal pain [Unknown]
  - Haemorrhage [Unknown]

NARRATIVE: CASE EVENT DATE: 20240301
